FAERS Safety Report 9867591 (Version 2)
Quarter: 2014Q1

REPORT INFORMATION
  Report Type: Spontaneous
  Country: US (occurrence: US)
  Receive Date: 20140204
  Receipt Date: 20140204
  Transmission Date: 20141002
  Serious: No
  Sender: FDA-Public Use
  Company Number: US-GALDERMA-US13002459

PATIENT
  Age: 16 Year
  Sex: Female

DRUGS (6)
  1. EPIDUO (ADAPALENE, BENZOYL PEROXIDE) GEL 0.1% / 2.5% [Suspect]
     Indication: ACNE
     Route: 061
     Dates: start: 201305
  2. EPIDUO (ADAPALENE, BENZOYL PEROXIDE) GEL 0.1% / 2.5% [Suspect]
     Route: 061
  3. EPIDUO (ADAPALENE, BENZOYL PEROXIDE) GEL 0.1% / 2.5% [Suspect]
     Route: 061
  4. SOOTHING WASH [Concomitant]
     Indication: THERAPEUTIC SKIN CARE TOPICAL
     Route: 061
  5. BANANA BOAT SUNSCREEN [Concomitant]
     Indication: PROPHYLAXIS AGAINST SOLAR RADIATION
     Route: 061
     Dates: start: 201307
  6. ALOE VERA [Concomitant]
     Indication: THERAPEUTIC SKIN CARE TOPICAL
     Route: 061

REACTIONS (7)
  - Acne [Not Recovered/Not Resolved]
  - Skin burning sensation [Not Recovered/Not Resolved]
  - Skin irritation [Not Recovered/Not Resolved]
  - Drug ineffective [Not Recovered/Not Resolved]
  - Skin exfoliation [Not Recovered/Not Resolved]
  - Off label use [Not Recovered/Not Resolved]
  - Pain of skin [Not Recovered/Not Resolved]
